FAERS Safety Report 6666960-3 (Version None)
Quarter: 2010Q2

REPORT INFORMATION
  Report Type: 
  Country: None (occurrence: None)
  Receive Date: 20100405
  Receipt Date: 20100324
  Transmission Date: 20101027
  Serious: Yes (Hospitalization, Other)
  Sender: FDA-Public Use
  Company Number: PHHY2010BR18813

PATIENT
  Sex: Female

DRUGS (4)
  1. DIOVAN [Suspect]
     Indication: HYPERTENSION
     Dosage: 1 TABLET (80 MG) PER DAY
     Route: 048
     Dates: start: 20050101
  2. ASPIRIN [Concomitant]
     Indication: CARDIAC DISORDER
     Dosage: 1 TABLET (100 MG) PER DAY
     Route: 048
  3. PURAN T4 [Concomitant]
     Indication: HYPERTHYROIDISM
     Dosage: 1 TABLET (100 UG) PER DAY
     Route: 048
  4. VYTORIN [Concomitant]
     Indication: CARDIAC DISORDER
     Dosage: 1 TABLET (10/40 MG) PER DAY
     Route: 048

REACTIONS (4)
  - CARDIAC OPERATION [None]
  - MYOCARDIAL ISCHAEMIA [None]
  - VASCULAR GRAFT [None]
  - VENOUS OCCLUSION [None]
